FAERS Safety Report 6375986-9 (Version None)
Quarter: 2009Q3

REPORT INFORMATION
  Report Type: 
  Country: None (occurrence: None)
  Receive Date: 20090921
  Receipt Date: 20090908
  Transmission Date: 20100115
  Serious: Yes (Hospitalization, Other)
  Sender: FDA-Public Use
  Company Number: SPV1-2009-01691

PATIENT
  Age: 67 Year
  Sex: Female

DRUGS (4)
  1. ANAGRELIDE HCL [Suspect]
     Indication: ESSENTIAL THROMBOCYTHAEMIA
     Dosage: ORAL, 0.5 MG, EVERY OTHER DAY, ORAL, 0.5 MG, 1X/DAY:QD, ORAL
     Route: 048
     Dates: start: 20080301, end: 20090101
  2. ANAGRELIDE HCL [Suspect]
     Indication: ESSENTIAL THROMBOCYTHAEMIA
     Dosage: ORAL, 0.5 MG, EVERY OTHER DAY, ORAL, 0.5 MG, 1X/DAY:QD, ORAL
     Route: 048
     Dates: start: 20090801, end: 20090801
  3. ACETYLSALICYLIC ACID SRT [Concomitant]
  4. BISOPROLOL FUMARATE [Concomitant]

REACTIONS (11)
  - ARTHRALGIA [None]
  - CHOLESTASIS [None]
  - DIARRHOEA [None]
  - GENERAL PHYSICAL HEALTH DETERIORATION [None]
  - HIATUS HERNIA [None]
  - MYALGIA [None]
  - PERICARDIAL EFFUSION [None]
  - POLYMYALGIA RHEUMATICA [None]
  - POLYSEROSITIS [None]
  - PYREXIA [None]
  - WEIGHT DECREASED [None]
